FAERS Safety Report 26050338 (Version 2)
Quarter: 2025Q4

REPORT INFORMATION
  Report Type: Spontaneous
  Country: US (occurrence: US)
  Receive Date: 20251116
  Receipt Date: 20251124
  Transmission Date: 20260117
  Serious: Yes (Life-Threatening, Hospitalization)
  Sender: TEVA
  Company Number: US-TEVA-VS-3392196

PATIENT
  Age: 6 Year
  Sex: Female

DRUGS (4)
  1. BLEOMYCIN [Suspect]
     Active Substance: BLEOMYCIN SULFATE
     Indication: Sclerotherapy
     Dosage: 1.5 UNITS
     Route: 065
  2. BUPIVACAINE [Concomitant]
     Active Substance: BUPIVACAINE
     Indication: Analgesic therapy
     Route: 065
  3. FENTANYL [Concomitant]
     Active Substance: FENTANYL
     Indication: Analgesic therapy
     Route: 065
  4. MORPHINE [Concomitant]
     Active Substance: MORPHINE
     Indication: Analgesic therapy
     Route: 065

REACTIONS (7)
  - Hypersensitivity pneumonitis [Recovering/Resolving]
  - Off label use [Unknown]
  - Respiratory distress [Recovering/Resolving]
  - Hypotension [Recovering/Resolving]
  - Respiratory failure [Recovering/Resolving]
  - Haemodynamic instability [Recovering/Resolving]
  - Cardiac arrest [Recovered/Resolved]
